FAERS Safety Report 6804087-8 (Version None)
Quarter: 2010Q2

REPORT INFORMATION
  Report Type: 
  Country: None (occurrence: None)
  Receive Date: 20100628
  Receipt Date: 20061115
  Transmission Date: 20101027
  Serious: Yes (Other)
  Sender: FDA-Public Use
  Company Number: US-PFIZER INC-2006141304

PATIENT
  Age: 63 Year
  Sex: Male
  Weight: 74.84 kg

DRUGS (5)
  1. SUTENT [Suspect]
     Indication: RENAL CELL CARCINOMA
     Route: 048
  2. METOPROLOL [Concomitant]
  3. LOPRESSOR [Concomitant]
  4. NORVASC [Concomitant]
  5. LASIX [Concomitant]

REACTIONS (1)
  - CARDIAC FAILURE CONGESTIVE [None]
